FAERS Safety Report 5598247-4 (Version None)
Quarter: 2008Q1

REPORT INFORMATION
  Report Type: 
  Country: None (occurrence: None)
  Receive Date: 20080117
  Receipt Date: 20080117
  Transmission Date: 20080703
  Serious: Yes (Death)
  Sender: FDA-Public Use
  Company Number: None

PATIENT
  Age: 41 Year
  Sex: Male
  Weight: 77.1115 kg

DRUGS (1)
  1. PAROXETINE [Suspect]
     Indication: ANXIETY
     Dosage: 3 TIMES PER DAY
     Dates: start: 20070301, end: 20070617

REACTIONS (8)
  - ABNORMAL BEHAVIOUR [None]
  - ALCOHOLISM [None]
  - AMNESIA [None]
  - COMPLETED SUICIDE [None]
  - CONFUSIONAL STATE [None]
  - OBSESSIVE-COMPULSIVE DISORDER [None]
  - PARANOIA [None]
  - THINKING ABNORMAL [None]
